APPROVED DRUG PRODUCT: VENLAFAXINE HYDROCHLORIDE
Active Ingredient: VENLAFAXINE HYDROCHLORIDE
Strength: EQ 150MG BASE
Dosage Form/Route: TABLET, EXTENDED RELEASE;ORAL
Application: A217841 | Product #001 | TE Code: AB
Applicant: ABON PHARMACEUTICALS LLC
Approved: Feb 7, 2025 | RLD: No | RS: No | Type: RX